FAERS Safety Report 13832318 (Version 1)
Quarter: 2017Q3

REPORT INFORMATION
  Report Type: Spontaneous
  Country: US (occurrence: US)
  Receive Date: 20170803
  Receipt Date: 20170803
  Transmission Date: 20171127
  Serious: No
  Sender: FDA-Public Use
  Company Number: US-ROCHE-620501

PATIENT
  Age: 70 Year
  Sex: Female

DRUGS (4)
  1. NIACIN. [Concomitant]
     Active Substance: NIACIN
     Route: 065
  2. BONIVA [Suspect]
     Active Substance: IBANDRONATE SODIUM
     Indication: OSTEOPOROSIS
     Route: 048
     Dates: start: 20070111, end: 20100411
  3. CALCIUM [Concomitant]
     Active Substance: CALCIUM
     Route: 065
  4. CRESTOR [Concomitant]
     Active Substance: ROSUVASTATIN CALCIUM
     Route: 065

REACTIONS (7)
  - Pain in jaw [Recovering/Resolving]
  - Facial pain [Unknown]
  - Sinusitis [Unknown]
  - Temperature intolerance [Not Recovered/Not Resolved]
  - Bone density decreased [Not Recovered/Not Resolved]
  - Gingival pain [Unknown]
  - Drug ineffective [Unknown]

NARRATIVE: CASE EVENT DATE: 200812
